FAERS Safety Report 13788524 (Version 4)
Quarter: 2018Q1

REPORT INFORMATION
  Report Type: Spontaneous
  Country: US (occurrence: US)
  Receive Date: 20170725
  Receipt Date: 20180208
  Transmission Date: 20180508
  Serious: No
  Sender: FDA-Public Use
  Company Number: US-JNJFOC-20170428966

PATIENT
  Age: 73 Year
  Sex: Male

DRUGS (25)
  1. KLOR-CON [Concomitant]
     Active Substance: POTASSIUM CHLORIDE
  2. TAMSULOSIN [Concomitant]
     Active Substance: TAMSULOSIN
  3. LYRICA [Concomitant]
     Active Substance: PREGABALIN
  4. METAXALONE. [Concomitant]
     Active Substance: METAXALONE
  5. FISH OIL [Concomitant]
     Active Substance: FISH OIL
  6. IMBRUVICA [Suspect]
     Active Substance: IBRUTINIB
     Indication: MANTLE CELL LYMPHOMA
     Route: 048
     Dates: start: 20170202, end: 2017
  7. HYDROXYCHLOROQUINE [Concomitant]
     Active Substance: HYDROXYCHLOROQUINE
  8. FUROSEMIDE. [Concomitant]
     Active Substance: FUROSEMIDE
  9. VOLTAREN [Concomitant]
     Active Substance: DICLOFENAC SODIUM
  10. SAW PALMETTO [Concomitant]
     Active Substance: HERBALS\SAW PALMETTO
  11. GLIMEPIRIDE A [Concomitant]
  12. NAPROXEN. [Concomitant]
     Active Substance: NAPROXEN
  13. ALLEGRA [Concomitant]
     Active Substance: FEXOFENADINE HYDROCHLORIDE
     Route: 048
  14. IMBRUVICA [Suspect]
     Active Substance: IBRUTINIB
     Indication: MANTLE CELL LYMPHOMA
     Route: 048
     Dates: start: 201706
  15. BUTALBITAL [Concomitant]
     Active Substance: BUTALBITAL
  16. ROPINIROLE. [Concomitant]
     Active Substance: ROPINIROLE
     Route: 048
  17. VITAMIN C [Concomitant]
     Active Substance: ASCORBIC ACID
     Route: 048
  18. ZINC. [Concomitant]
     Active Substance: ZINC
  19. BUTALBITAL, ACETAMINOPHEN, AND CAFFEINE [Concomitant]
     Active Substance: ACETAMINOPHEN\BUTALBITAL\CAFFEINE
  20. AMLODIPINE [Concomitant]
     Active Substance: AMLODIPINE BESYLATE
  21. CLOPIDOGREL [Concomitant]
     Active Substance: CLOPIDOGREL BISULFATE
  22. SOTALOL. [Concomitant]
     Active Substance: SOTALOL
  23. METFORMIN [Concomitant]
     Active Substance: METFORMIN HYDROCHLORIDE
  24. SIMVASTATIN. [Concomitant]
     Active Substance: SIMVASTATIN
  25. ASPIRIN. [Concomitant]
     Active Substance: ASPIRIN

REACTIONS (7)
  - Thrombocytopenia [Unknown]
  - Urinary tract infection [Unknown]
  - Skin warm [Unknown]
  - Dry skin [Unknown]
  - Asthenia [Unknown]
  - Dermatitis acneiform [Unknown]
  - Skin lesion [Unknown]

NARRATIVE: CASE EVENT DATE: 2017
